FAERS Safety Report 18889144 (Version 1)
Quarter: 2021Q1

REPORT INFORMATION
  Report Type: Spontaneous
  Country: US (occurrence: US)
  Receive Date: 20210213
  Receipt Date: 20210213
  Transmission Date: 20210420
  Serious: No
  Sender: FDA-Public Use
  Company Number: US-009507513-2102USA004453

PATIENT
  Age: 57 Year
  Sex: Male

DRUGS (2)
  1. INTERFERON GAMMA NOS [Suspect]
     Active Substance: INTERFERON GAMMA
     Indication: CUTANEOUS T-CELL LYMPHOMA STAGE II
     Dosage: UNK
  2. KEYTRUDA [Suspect]
     Active Substance: PEMBROLIZUMAB
     Indication: CUTANEOUS T-CELL LYMPHOMA STAGE II
     Dosage: UNK

REACTIONS (1)
  - Off label use [Unknown]
